FAERS Safety Report 15288213 (Version 2)
Quarter: 2019Q1

REPORT INFORMATION
  Report Type: Spontaneous
  Country: ES (occurrence: ES)
  Receive Date: 20180817
  Receipt Date: 20190115
  Transmission Date: 20190417
  Serious: Yes (Other)
  Sender: FDA-Public Use
  Company Number: ES-ROCHE-2170894

PATIENT

DRUGS (1)
  1. VALGANCICLOVIR HYDROCHLORIDE. [Suspect]
     Active Substance: VALGANCICLOVIR HYDROCHLORIDE
     Indication: CYTOMEGALOVIRUS TEST POSITIVE
     Dosage: UNK
     Route: 065

REACTIONS (1)
  - Haematotoxicity [Unknown]
